FAERS Safety Report 13818708 (Version 1)
Quarter: 2017Q3

REPORT INFORMATION
  Report Type: Report from Study
  Country: US (occurrence: US)
  Receive Date: 20170731
  Receipt Date: 20170731
  Transmission Date: 20171127
  Serious: Yes (Other)
  Sender: FDA-Public Use
  Company Number: US-IPSEN-CABO-17008170

PATIENT
  Sex: Female

DRUGS (13)
  1. KEFLEX [Concomitant]
     Active Substance: CEPHALEXIN
  2. SYNTHROID [Concomitant]
     Active Substance: LEVOTHYROXINE SODIUM
  3. LOVENOX [Concomitant]
     Active Substance: ENOXAPARIN SODIUM
  4. ZANTAC [Concomitant]
     Active Substance: RANITIDINE HYDROCHLORIDE
  5. NEURONTIN [Concomitant]
     Active Substance: GABAPENTIN
  6. CLARITIN [Concomitant]
     Active Substance: LORATADINE
  7. REMERON [Concomitant]
     Active Substance: MIRTAZAPINE
  8. COMPAZINE [Concomitant]
     Active Substance: PROCHLORPERAZINE MALEATE
  9. ROMICIN [Concomitant]
  10. FLONASE [Concomitant]
     Active Substance: FLUTICASONE PROPIONATE
  11. PERCOCET [Concomitant]
     Active Substance: ACETAMINOPHEN\OXYCODONE HYDROCHLORIDE
  12. DELTASONE [Concomitant]
     Active Substance: PREDNISONE
  13. CABOMETYX [Suspect]
     Active Substance: CABOZANTINIB S-MALATE
     Indication: RENAL CANCER
     Dosage: 40 MG, QD
     Route: 048
     Dates: start: 20170106, end: 201702

REACTIONS (4)
  - Diarrhoea [Unknown]
  - Jugular vein thrombosis [Unknown]
  - Unevaluable event [Unknown]
  - Decubitus ulcer [Not Recovered/Not Resolved]
